FAERS Safety Report 6840735-4 (Version None)
Quarter: 2010Q3

REPORT INFORMATION
  Report Type: 
  Country: None (occurrence: None)
  Receive Date: 20100714
  Receipt Date: 20100629
  Transmission Date: 20110219
  Serious: No
  Sender: FDA-Public Use
  Company Number: US-B.I. PHARMACEUTICALS,INC./RIDGEFIELD-2010-BP-07438BP

PATIENT
  Sex: Male

DRUGS (4)
  1. ZANTAC 150 [Suspect]
     Dosage: 300 MG
     Route: 048
     Dates: start: 20100628, end: 20100628
  2. PLAVIX [Concomitant]
     Indication: CARDIAC DISORDER
  3. SUDAFED 12 HOUR [Concomitant]
  4. VITAMINS [Concomitant]
     Indication: PROPHYLAXIS

REACTIONS (1)
  - EATING DISORDER [None]
